FAERS Safety Report 6448748-1 (Version None)
Quarter: 2009Q4

REPORT INFORMATION
  Report Type: 
  Country: None (occurrence: None)
  Receive Date: 20091120
  Receipt Date: 20091001
  Transmission Date: 20100525
  Serious: No
  Sender: FDA-Public Use
  Company Number: US-KINGPHARMUSA00001-K200901221

PATIENT
  Age: 91 Year
  Sex: Female
  Weight: 56.689 kg

DRUGS (4)
  1. FLECTOR [Suspect]
     Indication: ARTHRITIS
     Dosage: 1 PATCH, QD, ^SEVERAL MONTHS^
     Route: 061
     Dates: start: 20090701, end: 20090901
  2. SYNTHROID [Concomitant]
     Indication: HYPOTHYROIDISM
     Dosage: 0.3 MG, QD
     Route: 048
  3. CORTISONE ACETATE [Concomitant]
     Indication: ARTHRITIS
     Dosage: UNK
  4. CORTISONE [Concomitant]
     Indication: ARTHRITIS
     Route: 061

REACTIONS (3)
  - APPLICATION SITE BURN [None]
  - APPLICATION SITE ERYTHEMA [None]
  - APPLICATION SITE RASH [None]
